FAERS Safety Report 20881530 (Version 1)
Quarter: 2022Q2

REPORT INFORMATION
  Report Type: Report from Study
  Country: US (occurrence: US)
  Receive Date: 20220526
  Receipt Date: 20220526
  Transmission Date: 20220721
  Serious: Yes (Other)
  Sender: FDA-Public Use
  Company Number: US-BRISTOL-MYERS SQUIBB COMPANY-2022-045241

PATIENT
  Age: 43 Year
  Sex: Female
  Weight: 76.6 kg

DRUGS (3)
  1. NIVOLUMAB [Suspect]
     Active Substance: NIVOLUMAB
     Indication: Leiomyosarcoma
     Dosage: 240 MG IV OVER 60 MINUTES ON DAYS 8, 22, AND 36
     Route: 042
     Dates: start: 20220105, end: 20220118
  2. IPILIMUMAB [Suspect]
     Active Substance: IPILIMUMAB
     Indication: Leiomyosarcoma
     Dosage: 1 MG/KG IV OVER 90 MINUTES ON DAY 8
     Route: 042
     Dates: start: 20220105, end: 20220105
  3. RECOMBINANT HUMAN INTERLEUKIN-15 [Suspect]
     Active Substance: RECOMBINANT HUMAN INTERLEUKIN-15
     Indication: Leiomyosarcoma
     Dosage: 1 MCG/KG ON DAYS 1-8 AND 22-29
     Route: 058
     Dates: start: 20211227, end: 20220102

REACTIONS (3)
  - Neutrophil count decreased [Recovered/Resolved]
  - White blood cell count decreased [Recovered/Resolved]
  - Hyperthyroidism [Unknown]

NARRATIVE: CASE EVENT DATE: 20220103
